FAERS Safety Report 18511235 (Version 1)
Quarter: 2020Q4

REPORT INFORMATION
  Report Type: Spontaneous
  Country: GB (occurrence: GB)
  Receive Date: 20201117
  Receipt Date: 20201117
  Transmission Date: 20210114
  Serious: Yes (Other)
  Sender: FDA-Public Use
  Company Number: GB-TEVA-2020-GB-1848260

PATIENT
  Age: 39 Year
  Sex: Male

DRUGS (1)
  1. OMEPRAZOLE. [Suspect]
     Active Substance: OMEPRAZOLE
     Indication: GASTROOESOPHAGEAL REFLUX DISEASE
     Dosage: 20 MG
     Route: 048
     Dates: start: 20200810, end: 20200820

REACTIONS (6)
  - Product quality issue [Unknown]
  - Haemorrhage [Recovered/Resolved]
  - Gastrooesophageal reflux disease [Recovered/Resolved]
  - Burning sensation [Recovered/Resolved]
  - Parosmia [Recovered/Resolved]
  - Genital swelling [Recovered/Resolved]
